FAERS Safety Report 11128412 (Version 3)
Quarter: 2015Q4

REPORT INFORMATION
  Report Type: Report from Study
  Country: US (occurrence: US)
  Receive Date: 20150521
  Receipt Date: 20151029
  Transmission Date: 20160304
  Serious: Yes (Other)
  Sender: FDA-Public Use
  Company Number: US-SA-2015SA005693

PATIENT
  Age: 54 Year
  Sex: Male

DRUGS (2)
  1. LEMTRADA [Suspect]
     Active Substance: ALEMTUZUMAB
     Indication: MULTIPLE SCLEROSIS RELAPSE
     Dosage: 5 VIALS, ANNUAL
     Route: 041
     Dates: start: 20150105, end: 20150109
  2. INSULIN [Concomitant]
     Active Substance: INSULIN NOS

REACTIONS (26)
  - Activities of daily living impaired [Unknown]
  - Rhinorrhoea [Recovering/Resolving]
  - Malaise [Not Recovered/Not Resolved]
  - Halo vision [Unknown]
  - Nausea [Recovering/Resolving]
  - Influenza [Unknown]
  - Cellulitis [Unknown]
  - Paruresis [Unknown]
  - Malaise [Unknown]
  - Eye pain [Unknown]
  - Constipation [Unknown]
  - Pruritus [Recovering/Resolving]
  - Rotavirus infection [Not Recovered/Not Resolved]
  - Vomiting [Not Recovered/Not Resolved]
  - Asthenia [Not Recovered/Not Resolved]
  - Injection site pain [Unknown]
  - Tongue blistering [Recovering/Resolving]
  - Oropharyngeal pain [Recovering/Resolving]
  - Diarrhoea [Not Recovered/Not Resolved]
  - Dysphagia [Recovering/Resolving]
  - Exophthalmos [Unknown]
  - Feeling hot [Recovering/Resolving]
  - Fatigue [Recovering/Resolving]
  - Bone pain [Recovering/Resolving]
  - Herpes zoster [Unknown]
  - Blister [Unknown]

NARRATIVE: CASE EVENT DATE: 2015
